FAERS Safety Report 9358867 (Version 1)
Quarter: 2013Q2

REPORT INFORMATION
  Report Type: Report from Study
  Country: BR (occurrence: BR)
  Receive Date: 20130620
  Receipt Date: 20130620
  Transmission Date: 20140414
  Serious: Yes (Other)
  Sender: FDA-Public Use
  Company Number: BR-ABBOTT-13P-020-1103829-00

PATIENT
  Sex: Female
  Weight: 75 kg

DRUGS (11)
  1. HUMIRA [Suspect]
     Indication: ANKYLOSING SPONDYLITIS
     Route: 058
     Dates: start: 2011
  2. LOSARTAN [Concomitant]
     Indication: BLOOD PRESSURE ABNORMAL
     Route: 048
     Dates: start: 2011
  3. PURAN T4 [Concomitant]
     Indication: HYPOTHYROIDISM
     Dosage: IN FASTING
     Route: 048
     Dates: start: 2011
  4. HYDROCHLOROTHIAZIDE [Concomitant]
     Indication: FLUID RETENTION
     Dosage: IN THE MORNING
     Route: 048
     Dates: start: 2011
  5. HYDROCHLOROTHIAZIDE [Concomitant]
     Indication: BLOOD PRESSURE ABNORMAL
  6. OMEPRAZOLE [Concomitant]
     Indication: PRODUCT USED FOR UNKNOWN INDICATION
     Dosage: IN FASTING
     Route: 048
     Dates: start: 2011
  7. SPIROLACTON [Concomitant]
     Indication: PRODUCT USED FOR UNKNOWN INDICATION
     Route: 048
     Dates: start: 2012
  8. SIMVASTATIN [Concomitant]
     Indication: BLOOD TRIGLYCERIDES
     Dosage: AT NIGHT
     Route: 048
     Dates: start: 2011
  9. AMLODIPINE [Concomitant]
     Indication: BLOOD PRESSURE ABNORMAL
     Route: 048
     Dates: start: 2011
  10. SUSTRATE [Concomitant]
     Indication: ANGINA PECTORIS
     Route: 048
     Dates: start: 2011
  11. NEBILET [Concomitant]
     Indication: BLOOD PRESSURE ABNORMAL
     Route: 048
     Dates: start: 2012

REACTIONS (8)
  - Venous occlusion [Unknown]
  - Coronary artery stenosis [Unknown]
  - Blood cholesterol increased [Unknown]
  - Insomnia [Recovered/Resolved]
  - Coronary artery restenosis [Unknown]
  - Arthralgia [Unknown]
  - Musculoskeletal pain [Unknown]
  - Arthralgia [Unknown]
